FAERS Safety Report 21687585 (Version 2)
Quarter: 2022Q4

REPORT INFORMATION
  Report Type: Spontaneous
  Country: US (occurrence: US)
  Receive Date: 20221206
  Receipt Date: 20221209
  Transmission Date: 20230112
  Serious: No
  Sender: FDA-Public Use
  Company Number: US-GLAXOSMITHKLINE-USCH2022AMR046985

PATIENT
  Age: 51 Year
  Sex: Female

DRUGS (25)
  1. VOLTAREN [Suspect]
     Active Substance: DICLOFENAC SODIUM
     Indication: Arthralgia
     Dosage: 2 G, QID
     Route: 061
     Dates: start: 20210113
  2. RITALIN [Suspect]
     Active Substance: METHYLPHENIDATE HYDROCHLORIDE
     Indication: Fatigue
     Dosage: 1 DF, BID
     Route: 048
     Dates: start: 20221005, end: 20221122
  3. VITAMIN C [Suspect]
     Active Substance: ASCORBIC ACID
     Indication: Product used for unknown indication
     Dosage: 1000 MG, QD
     Route: 048
  4. TYLENOL [Suspect]
     Active Substance: ACETAMINOPHEN
     Indication: Product used for unknown indication
     Dosage: 1000 MG
     Route: 048
     Dates: start: 20220918
  5. ZOVIRAX [Suspect]
     Active Substance: ACYCLOVIR
     Indication: Product used for unknown indication
     Dosage: 400 MG, BID (1 TABLET)
     Route: 048
     Dates: start: 20220912
  6. ALBUTEROL SULFATE [Suspect]
     Active Substance: ALBUTEROL SULFATE
     Indication: Wheezing
     Dosage: UNK (2 PUFFS)
     Route: 055
     Dates: start: 20220930
  7. ASPIRIN [Suspect]
     Active Substance: ASPIRIN
     Indication: Product used for unknown indication
     Dosage: UNK UNK, QD
     Route: 048
  8. TESSALON [Suspect]
     Active Substance: BENZONATATE
     Indication: Product used for unknown indication
     Dosage: UNK
     Route: 065
  9. BUSPAR [Suspect]
     Active Substance: BUSPIRONE HYDROCHLORIDE
     Indication: Product used for unknown indication
     Dosage: UNK, QD (TAKE ONE AND ONE-HALF TABLETS)
     Route: 048
  10. CALCIUM [Suspect]
     Active Substance: CALCIUM
     Indication: Product used for unknown indication
     Dosage: UNK
     Route: 048
  11. ZYRTEC [Suspect]
     Active Substance: CETIRIZINE HYDROCHLORIDE
     Indication: Product used for unknown indication
     Dosage: 1 DF, QD (10 MG TOTAL)
     Route: 048
  12. MARINOL [Suspect]
     Active Substance: DRONABINOL
     Indication: Nausea
     Dosage: 1 DF, BID (10 MG TOTAL, BEFORE MEALS)
     Route: 048
     Dates: start: 20221103
  13. MARINOL [Suspect]
     Active Substance: DRONABINOL
     Indication: Vomiting
  14. LEXAPRO [Suspect]
     Active Substance: ESCITALOPRAM OXALATE
     Indication: Product used for unknown indication
     Dosage: 1.5 DF, QD (30 MG TOTAL)
     Route: 048
  15. DURAGESIC [Suspect]
     Active Substance: FENTANYL
     Indication: Pain
     Dosage: UNK, QOD (2 PATCHES ONTO THE SKIN 200 MCG)
     Route: 062
     Dates: start: 20221117
  16. LEVOTHYROXINE [Suspect]
     Active Substance: LEVOTHYROXINE
     Indication: Product used for unknown indication
     Dosage: 1 DF, QD
     Route: 048
     Dates: start: 20221018
  17. MAGNESIUM LACTATE [Suspect]
     Active Substance: MAGNESIUM LACTATE
     Indication: Product used for unknown indication
     Dosage: 1 DF, QD (84 MG TOTAL)
     Route: 048
     Dates: start: 20221102
  18. OXYCODONE [Suspect]
     Active Substance: OXYCODONE
     Indication: Cancer pain
     Dosage: 2 DF (40 MG TOTAL)
     Route: 048
     Dates: start: 20221005
  19. KLOR-CON [Suspect]
     Active Substance: POTASSIUM CHLORIDE
     Indication: Product used for unknown indication
     Dosage: UNK, BID (TAKE 20 MEQ 1 PACKET)
     Route: 048
     Dates: start: 20220819
  20. LYRICA [Suspect]
     Active Substance: PREGABALIN
     Indication: Cancer pain
     Dosage: 1 DF, BID (150 MG TOTAL)
     Route: 048
     Dates: start: 20221024
  21. COMPAZINE [Suspect]
     Active Substance: PROCHLORPERAZINE MALEATE
     Indication: Nausea
     Dosage: UNK (1 OR 2 TABLETS )
     Route: 048
     Dates: start: 20221017
  22. TOPAMAX [Suspect]
     Active Substance: TOPIRAMATE
     Indication: Product used for unknown indication
     Dosage: 1 DF, QD
     Route: 065
     Dates: start: 20221117
  23. MENAQUINONE 6 [Suspect]
     Active Substance: MENAQUINONE 6
     Indication: Product used for unknown indication
     Dosage: UNK
     Route: 048
  24. MENAQUINONE 6 [Suspect]
     Active Substance: MENAQUINONE 6
     Dosage: UNK (CAPSULE)
     Route: 065
  25. ABILIFY [Suspect]
     Active Substance: ARIPIPRAZOLE
     Indication: Product used for unknown indication
     Dosage: 1 DF, QD (2 MG TOTAL)
     Route: 048
     Dates: start: 20221110

REACTIONS (7)
  - Visual acuity reduced [Unknown]
  - Visual impairment [Unknown]
  - Keratopathy [Unknown]
  - Dry eye [Unknown]
  - Condition aggravated [Unknown]
  - Pain [Unknown]
  - Blister [Unknown]
